FAERS Safety Report 16297860 (Version 2)
Quarter: 2019Q2

REPORT INFORMATION
  Report Type: Spontaneous
  Country: AU (occurrence: AU)
  Receive Date: 20190510
  Receipt Date: 20190624
  Transmission Date: 20190711
  Serious: Yes (Other)
  Sender: FDA-Public Use
  Company Number: AU-GILEAD-2019-0406958

PATIENT
  Sex: Male
  Weight: 52 kg

DRUGS (2)
  1. TENOFOVIR DISOPROXIL FUMARATE. [Suspect]
     Active Substance: TENOFOVIR DISOPROXIL FUMARATE
     Indication: HEPATITIS B
     Dosage: UNK
     Route: 065
     Dates: end: 2017
  2. TACROLIMUS. [Concomitant]
     Active Substance: TACROLIMUS
     Dosage: 1.5 MG, BID
     Route: 065

REACTIONS (2)
  - Renal transplant [Unknown]
  - Osteoporotic fracture [Unknown]
